FAERS Safety Report 4957344-4 (Version None)
Quarter: 2006Q1

REPORT INFORMATION
  Report Type: 
  Country: None (occurrence: None)
  Receive Date: 20060327
  Receipt Date: 20060313
  Transmission Date: 20060701
  Serious: Yes (Other)
  Sender: FDA-Public Use
  Company Number: L06-USA-01027-01

PATIENT
  Age: 56 Year
  Sex: Female

DRUGS (9)
  1. CITALOPRAM [Suspect]
     Indication: AGITATION
     Dosage: 40 MG QD PO
     Route: 048
  2. CITALOPRAM [Suspect]
     Indication: ANXIETY
     Dosage: 40 MG QD PO
     Route: 048
  3. CITALOPRAM [Suspect]
     Indication: AGITATION
     Dosage: 20 MG QD PO
     Route: 048
  4. CITALOPRAM [Suspect]
     Indication: ANXIETY
     Dosage: 20 MG QD PO
     Route: 048
  5. LINEZOLID [Suspect]
     Indication: ENTEROCOCCAL INFECTION
     Dosage: 600 MG BID IV
     Route: 042
  6. MIRTAZAPINE [Suspect]
     Dosage: 30 MG QD
  7. ESOMEPRAZOLE [Concomitant]
  8. DEXAMETHASONE TAB [Concomitant]
  9. CYCLOSPORINE [Concomitant]

REACTIONS (10)
  - ASPARTATE AMINOTRANSFERASE INCREASED [None]
  - ASTHENIA [None]
  - BLOOD ALKALINE PHOSPHATASE INCREASED [None]
  - BLOOD BILIRUBIN INCREASED [None]
  - BLOOD CREATINE PHOSPHOKINASE MB INCREASED [None]
  - BLOOD LACTATE DEHYDROGENASE INCREASED [None]
  - DRUG INTERACTION [None]
  - LETHARGY [None]
  - SEROTONIN SYNDROME [None]
  - TROPONIN I INCREASED [None]
